FAERS Safety Report 10108798 (Version 1)
Quarter: 2014Q2

REPORT INFORMATION
  Report Type: Report from Study
  Country: US (occurrence: US)
  Receive Date: 20140425
  Receipt Date: 20140425
  Transmission Date: 20141212
  Serious: Yes (Other)
  Sender: FDA-Public Use
  Company Number: US-ROCHE-1386317

PATIENT
  Sex: Female
  Weight: 24.7 kg

DRUGS (2)
  1. NUTROPIN AQ [Suspect]
     Indication: TURNER^S SYNDROME
     Dosage: 10 MG/2 ML.
     Route: 058
  2. BENEFIBER [Concomitant]

REACTIONS (5)
  - Social problem [Unknown]
  - Emotional disorder [Unknown]
  - Otitis media acute [Unknown]
  - Constipation [Unknown]
  - Scoliosis [Unknown]
